FAERS Safety Report 7464832-8 (Version None)
Quarter: 2011Q2

REPORT INFORMATION
  Report Type: 
  Country: None (occurrence: None)
  Receive Date: 20110509
  Receipt Date: 20110502
  Transmission Date: 20111010
  Serious: Yes (Death)
  Sender: FDA-Public Use
  Company Number: US-BAYER-2011-032013

PATIENT
  Age: 69 Year
  Sex: Male

DRUGS (4)
  1. NEXAVAR [Suspect]
     Indication: HEPATIC NEOPLASM MALIGNANT
     Dosage: 400 MG, BID
     Dates: start: 20110324
  2. OXYCONTIN [Concomitant]
  3. HYDROCODONE BITARTRATE AND ACETAMINOPHEN [Concomitant]
  4. PROCHLORPERAZINE TAB [Concomitant]

REACTIONS (4)
  - VOMITING [None]
  - DEATH [None]
  - DECREASED APPETITE [None]
  - NAUSEA [None]
